FAERS Safety Report 10777417 (Version 1)
Quarter: 2015Q1

REPORT INFORMATION
  Report Type: Spontaneous
  Country: US (occurrence: US)
  Receive Date: 20150209
  Receipt Date: 20150209
  Transmission Date: 20150721
  Serious: No
  Sender: FDA-Public Use
  Company Number: US-PFIZER INC-2015048057

PATIENT
  Age: 83 Year
  Sex: Female

DRUGS (1)
  1. PROCARDIA XL [Suspect]
     Active Substance: NIFEDIPINE
     Dosage: 30 MG, 1X/DAY

REACTIONS (1)
  - Influenza [Unknown]
